FAERS Safety Report 9075782 (Version 1)
Quarter: 2013Q1

REPORT INFORMATION
  Report Type: Report from Study
  Country: US (occurrence: US)
  Receive Date: 20130129
  Receipt Date: 20130129
  Transmission Date: 20140127
  Serious: No
  Sender: FDA-Public Use
  Company Number: US-ABBOTT-12P-163-0939494-00

PATIENT
  Age: 55 Year
  Sex: Male

DRUGS (17)
  1. HUMIRA 40 MG/0.8 ML PEN [Suspect]
     Indication: POLYCHONDRITIS
     Route: 058
     Dates: start: 20120524
  2. LANTUS [Concomitant]
     Indication: TYPE 2 DIABETES MELLITUS
     Dosage: 10 UNITS DAILY
  3. NOVOLOG [Concomitant]
     Indication: INSULIN-REQUIRING TYPE 2 DIABETES MELLITUS
  4. ALBUTEROL [Concomitant]
     Indication: POLYCHONDRITIS
     Dosage: 2 PUFFS
     Route: 048
  5. ALENDRONATE [Concomitant]
     Indication: OSTEOPOROSIS
     Dosage: 1 TAB WEEKLY
  6. CALCIUM +VIT D [Concomitant]
     Indication: MINERAL SUPPLEMENTATION
     Dosage: 2 TABS
  7. MUCINEX [Concomitant]
     Indication: MUCOUS MEMBRANE DISORDER
     Dosage: 1 TAB
  8. IBUPROFEN [Concomitant]
     Indication: PAIN
  9. LISINOPRIL [Concomitant]
     Indication: HYPERTENSION
     Dosage: 5MG DAILY
  10. LORATADINE [Concomitant]
     Indication: SEASONAL ALLERGY
     Dosage: 10MG DAILY
  11. MULTIVITAMINS WITH MINERALS [Concomitant]
     Indication: VITAMIN SUPPLEMENTATION
     Dosage: DAILY
  12. MYCOPHENOLATE [Concomitant]
     Indication: INFLAMMATION
     Dosage: 3 TABS BID
  13. OMEPRAZOLE [Concomitant]
     Indication: GASTROOESOPHAGEAL REFLUX DISEASE
     Dosage: 20MG DAILY
  14. PREDNISONE ACETATE [Concomitant]
     Indication: ILL-DEFINED DISORDER
     Route: 061
  15. PREDNISONE [Concomitant]
     Indication: ILL-DEFINED DISORDER
     Dosage: 30MG DAILY
  16. ROSUVASTATIN [Concomitant]
     Indication: BLOOD CHOLESTEROL INCREASED
     Dosage: 1/2 TAB DAILY
  17. VIAGRA [Concomitant]
     Indication: PRODUCT USED FOR UNKNOWN INDICATION

REACTIONS (1)
  - Injection site mass [Not Recovered/Not Resolved]
